FAERS Safety Report 23521838 (Version 2)
Quarter: 2024Q1

REPORT INFORMATION
  Report Type: Report from Study
  Country: JP (occurrence: None)
  Receive Date: 20240214
  Receipt Date: 20240322
  Transmission Date: 20240410
  Serious: Yes (Life-Threatening, Other)
  Sender: FDA-Public Use
  Company Number: 2024A037182

PATIENT
  Age: 18 Year
  Sex: Female

DRUGS (3)
  1. KOSELUGO [Suspect]
     Active Substance: SELUMETINIB
     Indication: Neurofibroma
     Dosage: AT APPROXIMATELY FASTING STATE
     Route: 048
     Dates: start: 20230527, end: 20230531
  2. KOSELUGO [Suspect]
     Active Substance: SELUMETINIB
     Indication: Neurofibroma
     Dosage: AT APPROXIMATELY FASTING STATE
     Route: 048
     Dates: start: 20230610, end: 20230622
  3. KOSELUGO [Suspect]
     Active Substance: SELUMETINIB
     Indication: Neurofibroma
     Dosage: AT APPROXIMATELY FASTING STATE
     Route: 048
     Dates: start: 20230623, end: 20231102

REACTIONS (4)
  - Neurofibrosarcoma [Not Recovered/Not Resolved]
  - Metastases to bone [Unknown]
  - Headache [Recovering/Resolving]
  - Pyrexia [Recovering/Resolving]

NARRATIVE: CASE EVENT DATE: 20230529
